FAERS Safety Report 9456497 (Version 2)
Quarter: 2013Q3

REPORT INFORMATION
  Report Type: Spontaneous
  Country: US (occurrence: US)
  Receive Date: 20130813
  Receipt Date: 20130823
  Transmission Date: 20140515
  Serious: No
  Sender: FDA-Public Use
  Company Number: US-JNJFOC-20130712438

PATIENT
  Age: 43 Year
  Sex: Male
  Weight: 95.26 kg

DRUGS (3)
  1. INVEGA [Suspect]
     Indication: AFFECTIVE DISORDER
     Dosage: ABOUT 4 TO 5 YEARS AGO
     Route: 048
  2. WELLBUTRIN [Concomitant]
     Route: 048
  3. KLONOPIN [Concomitant]
     Route: 048
     Dates: start: 2003

REACTIONS (8)
  - Drug dose omission [Not Recovered/Not Resolved]
  - Feeling abnormal [Not Recovered/Not Resolved]
  - Abdominal discomfort [Not Recovered/Not Resolved]
  - Diarrhoea [Not Recovered/Not Resolved]
  - Anxiety [Not Recovered/Not Resolved]
  - Feeling jittery [Not Recovered/Not Resolved]
  - Somnolence [Not Recovered/Not Resolved]
  - Off label use [Unknown]
